FAERS Safety Report 9897142 (Version 2)
Quarter: 2014Q1

REPORT INFORMATION
  Report Type: Spontaneous
  Country: VN (occurrence: VN)
  Receive Date: 20140214
  Receipt Date: 20140327
  Transmission Date: 20141002
  Serious: Yes (Other)
  Sender: FDA-Public Use
  Company Number: VN-ROCHE-1349261

PATIENT
  Sex: Male

DRUGS (9)
  1. BEVACIZUMAB [Suspect]
     Indication: ADENOCARCINOMA
     Route: 065
  2. BEVACIZUMAB [Suspect]
     Indication: METASTASES TO PLEURA
  3. BEVACIZUMAB [Suspect]
     Indication: METASTASES TO HEART
  4. CARBOPLATIN [Suspect]
     Indication: ADENOCARCINOMA
     Route: 065
  5. CARBOPLATIN [Suspect]
     Indication: METASTASES TO PLEURA
  6. CARBOPLATIN [Suspect]
     Indication: METASTASES TO HEART
  7. PACLITAXEL [Suspect]
     Indication: ADENOCARCINOMA
     Route: 065
  8. PACLITAXEL [Suspect]
     Indication: METASTASES TO PLEURA
  9. PACLITAXEL [Suspect]
     Indication: METASTASES TO HEART

REACTIONS (4)
  - Pericardial effusion [Unknown]
  - Pleural effusion [Unknown]
  - Wheezing [Unknown]
  - Dyspnoea [Unknown]
